FAERS Safety Report 24455283 (Version 2)
Quarter: 2024Q4

REPORT INFORMATION
  Report Type: Spontaneous
  Country: US (occurrence: US)
  Receive Date: 20241017
  Receipt Date: 20241018
  Transmission Date: 20250115
  Serious: No
  Sender: ROCHE
  Company Number: US-ROCHE-3478347

PATIENT
  Age: 60 Year
  Sex: Female

DRUGS (3)
  1. RITUXIMAB [Suspect]
     Active Substance: RITUXIMAB
     Indication: Diffuse large B-cell lymphoma
     Route: 065
  2. GEMCITABINE [Concomitant]
     Active Substance: GEMCITABINE
  3. OXALIPLATIN [Concomitant]
     Active Substance: OXALIPLATIN

REACTIONS (1)
  - Coccidioidomycosis [Unknown]
